FAERS Safety Report 8791508 (Version 1)
Quarter: 2012Q4

REPORT INFORMATION
  Report Type: Spontaneous
  Country: US (occurrence: None)
  Receive Date: 20120914
  Receipt Date: 20120914
  Transmission Date: 20130627
  Serious: Yes (Other)
  Sender: FDA-Public Use
  Company Number: None

PATIENT
  Sex: Female

DRUGS (1)
  1. VITAMINS [Suspect]
     Indication: DRUG THERAPY
     Dosage: 1 fl oz. daily po
     Route: 048
     Dates: start: 20111006, end: 20111014

REACTIONS (1)
  - Bacterial infection [None]
